FAERS Safety Report 9543475 (Version 1)
Quarter: 2013Q3

REPORT INFORMATION
  Report Type: Report from Study
  Country: US (occurrence: US)
  Receive Date: 20130923
  Receipt Date: 20130923
  Transmission Date: 20140515
  Serious: Yes (Other)
  Sender: FDA-Public Use
  Company Number: US-BAYER-2013-112577

PATIENT
  Age: 60 Year
  Sex: Male

DRUGS (1)
  1. NEXAVAR [Suspect]
     Dosage: DOSE REGIMEN: 2X200MG
     Route: 048
     Dates: start: 201309

REACTIONS (3)
  - Hiccups [None]
  - Aphagia [None]
  - Insomnia [None]
